FAERS Safety Report 13726094 (Version 1)
Quarter: 2017Q3

REPORT INFORMATION
  Report Type: Spontaneous
  Country: FR (occurrence: FR)
  Receive Date: 20170706
  Receipt Date: 20170706
  Transmission Date: 20171127
  Serious: Yes (Hospitalization)
  Sender: FDA-Public Use
  Company Number: FR-TEVA-784075ROM

PATIENT
  Age: 68 Year
  Sex: Male

DRUGS (26)
  1. ZELITREX [Concomitant]
     Active Substance: VALACYCLOVIR HYDROCHLORIDE
  2. ALLOPURINOL. [Concomitant]
     Active Substance: ALLOPURINOL
  3. ZOPHREN [Concomitant]
     Active Substance: ONDANSETRON
  4. ETOPOSIDE MYLAN 20 MG/ML [Suspect]
     Active Substance: ETOPOSIDE
     Indication: DIFFUSE LARGE B-CELL LYMPHOMA STAGE IV
     Dosage: 106 MILLIGRAM DAILY; PROTOCOL R-EPOCH
     Route: 041
     Dates: start: 20170511, end: 20170514
  5. NEUPOGEN [Concomitant]
     Active Substance: FILGRASTIM
  6. DOXORUBICINE (CHLORHYDRATE DE) [Suspect]
     Active Substance: DOXORUBICIN
     Indication: DIFFUSE LARGE B-CELL LYMPHOMA STAGE IV
     Dosage: 21.1 MILLIGRAM DAILY; PROTOCOL R-EPOCH
     Route: 041
     Dates: start: 20170511, end: 20170514
  7. ARACYTINE [Suspect]
     Active Substance: CYTARABINE
     Indication: DIFFUSE LARGE B-CELL LYMPHOMA STAGE IV
     Dosage: 30 MILLIGRAM DAILY;
     Route: 037
     Dates: start: 20170510, end: 20170510
  8. ENDOXAN [Suspect]
     Active Substance: CYCLOPHOSPHAMIDE
     Indication: DIFFUSE LARGE B-CELL LYMPHOMA STAGE IV
     Dosage: 1585 MILLIGRAM DAILY; PROTOCOL R-EPOCH
     Route: 041
     Dates: start: 20170515, end: 20170515
  9. MOVICOL [Concomitant]
     Active Substance: POLYETHYLENE GLYCOL 3350\POTASSIUM CHLORIDE\SODIUM BICARBONATE\SODIUM CHLORIDE
  10. VINCRISTINE TEVA 0.1 POUR CENT (1 MG/1 ML) [Suspect]
     Active Substance: VINCRISTINE
     Indication: DIFFUSE LARGE B-CELL LYMPHOMA STAGE IV
     Dosage: .85 MILLIGRAM DAILY; PROTOCOL R-EPOCH
     Route: 041
     Dates: start: 20170511, end: 20170514
  11. BACTRIM [Concomitant]
     Active Substance: SULFAMETHOXAZOLE\TRIMETHOPRIM
  12. LEDERFOLINE [Concomitant]
     Active Substance: LEUCOVORIN CALCIUM
  13. CARTEOL [Concomitant]
     Active Substance: CARTEOLOL
  14. MABTHERA [Suspect]
     Active Substance: RITUXIMAB
     Indication: DIFFUSE LARGE B-CELL LYMPHOMA STAGE IV
     Dosage: 800 MILLIGRAM DAILY; PROTOCOL R-EPOCH
     Route: 041
     Dates: start: 20170510, end: 20170510
  15. CORTANCYL [Concomitant]
     Active Substance: PREDNISONE
     Indication: DIFFUSE LARGE B-CELL LYMPHOMA STAGE IV
     Dosage: 65 MILLIGRAM DAILY; PROTOCOL R-EPOCH
     Route: 048
     Dates: start: 20170511, end: 20170515
  16. METHYLPREDNISOLONE. [Concomitant]
     Active Substance: METHYLPREDNISOLONE
     Indication: DIFFUSE LARGE B-CELL LYMPHOMA STAGE IV
     Route: 037
     Dates: start: 20170510, end: 20170510
  17. EPREX [Concomitant]
     Active Substance: ERYTHROPOIETIN
  18. DIFFU K [Concomitant]
     Active Substance: POTASSIUM CHLORIDE
  19. PRIMPERAN [Concomitant]
     Active Substance: METOCLOPRAMIDE HYDROCHLORIDE
  20. EMEND [Concomitant]
     Active Substance: APREPITANT
  21. SPASFON (PHLOROGLUCINOL, TRIMETHYLPHLOROGLUCINOL) [Concomitant]
     Active Substance: PHLOROGLUCINOL\1,3,5-TRIMETHOXYBENZENE
  22. BETAHISTINE [Concomitant]
     Active Substance: BETAHISTINE
  23. METHOTREXATE BIODIM [Suspect]
     Active Substance: METHOTREXATE
     Indication: DIFFUSE LARGE B-CELL LYMPHOMA STAGE IV
     Dosage: 15 MILLIGRAM DAILY;
     Route: 037
     Dates: start: 20170510, end: 20170510
  24. INEXIUM [Concomitant]
     Active Substance: ESOMEPRAZOLE
  25. LEVOTHYROX [Concomitant]
     Active Substance: LEVOTHYROXINE
  26. TOPALGIC (FRANCE) [Concomitant]
     Active Substance: TRAMADOL

REACTIONS (4)
  - Bone marrow failure [Recovered/Resolved]
  - Acute kidney injury [Recovering/Resolving]
  - Campylobacter gastroenteritis [Recovered/Resolved]
  - Septic shock [Recovered/Resolved]

NARRATIVE: CASE EVENT DATE: 20170520
